FAERS Safety Report 8553675-X (Version None)
Quarter: 2012Q3

REPORT INFORMATION
  Report Type: 
  Country: None (occurrence: None)
  Receive Date: 20120731
  Receipt Date: 20120720
  Transmission Date: 20120928
  Serious: Yes (Hospitalization, Disabling, Other)
  Sender: FDA-Public Use
  Company Number: US-009507513-2010SP008200

PATIENT

DRUGS (7)
  1. ADVAIR [Concomitant]
     Dosage: UNK UNK, BID
     Route: 055
     Dates: start: 20040524
  2. PROMETRIUM [Suspect]
     Indication: MENSTRUATION IRREGULAR
     Dates: start: 20070101, end: 20070101
  3. SINGULAIR [Concomitant]
     Indication: ASTHMA
     Dosage: ^CINGULAR^
     Dates: start: 19930101
  4. TOPAMAX [Concomitant]
     Dosage: 50 MG, BID
     Route: 048
  5. ANESTHETIC (UNSPECIFIED) [Concomitant]
     Dosage: 4 WEEKS PRIOR TO DVT
     Route: 008
  6. NUVARING [Suspect]
     Indication: CONTRACEPTION
     Dates: start: 20050925, end: 20060501
  7. NUVARING [Suspect]
     Indication: MENSTRUAL DISORDER

REACTIONS (22)
  - SYNCOPE [None]
  - ARTHRALGIA [None]
  - INTERMITTENT CLAUDICATION [None]
  - DEEP VEIN THROMBOSIS [None]
  - ASTHENIA [None]
  - HEPATIC ENZYME INCREASED [None]
  - RASH PRURITIC [None]
  - ANGIOPATHY [None]
  - EXOSTOSIS [None]
  - BRONCHIAL HYPERREACTIVITY [None]
  - TINEA VERSICOLOUR [None]
  - OSTEOARTHRITIS [None]
  - MENORRHAGIA [None]
  - BREAST CANCER [None]
  - MIGRAINE [None]
  - OVARIAN CYST [None]
  - CATARACT [None]
  - FOOT OPERATION [None]
  - CYST [None]
  - OVARIAN CANCER [None]
  - WEIGHT DECREASED [None]
  - NAUSEA [None]
